FAERS Safety Report 6765237-5 (Version None)
Quarter: 2010Q2

REPORT INFORMATION
  Report Type: 
  Country: None (occurrence: None)
  Receive Date: 20100611
  Receipt Date: 20100527
  Transmission Date: 20101027
  Serious: Yes (Other)
  Sender: FDA-Public Use
  Company Number: US-ASTRAZENECA-2008UW12441

PATIENT
  Age: 34 Year
  Sex: Male
  Weight: 113.9 kg

DRUGS (15)
  1. SEROQUEL [Suspect]
     Indication: DEPRESSION
     Route: 048
     Dates: start: 19990723
  2. SEROQUEL [Suspect]
     Indication: PSYCHOTIC DISORDER
     Route: 048
     Dates: start: 19990723
  3. SEROQUEL [Suspect]
     Dosage: 100 TO 300MG
     Route: 048
     Dates: start: 19990101, end: 20060601
  4. SEROQUEL [Suspect]
     Dosage: 100 TO 300MG
     Route: 048
     Dates: start: 19990101, end: 20060601
  5. SEROQUEL [Suspect]
     Route: 048
     Dates: start: 20011101
  6. SEROQUEL [Suspect]
     Route: 048
     Dates: start: 20011101
  7. SEROQUEL [Suspect]
     Route: 048
     Dates: start: 20020307
  8. SEROQUEL [Suspect]
     Route: 048
     Dates: start: 20020307
  9. SEROQUEL [Suspect]
     Route: 048
     Dates: start: 20060701
  10. SEROQUEL [Suspect]
     Route: 048
     Dates: start: 20060701
  11. GEODON [Concomitant]
     Dates: start: 20010401
  12. RISPERDAL [Concomitant]
     Dates: start: 20030101
  13. ZYPREXA [Concomitant]
     Dates: start: 20010501
  14. ELAVIL [Concomitant]
     Dates: start: 20000301
  15. PAXIL [Concomitant]
     Dates: start: 20020307

REACTIONS (6)
  - DIABETES MELLITUS [None]
  - NEUROPATHY PERIPHERAL [None]
  - PERIODONTAL DISEASE [None]
  - TOOTH ABSCESS [None]
  - TOOTH INJURY [None]
  - TYPE 2 DIABETES MELLITUS [None]
